FAERS Safety Report 17727530 (Version 2)
Quarter: 2020Q3

REPORT INFORMATION
  Report Type: Spontaneous
  Country: US (occurrence: US)
  Receive Date: 20200430
  Receipt Date: 20200904
  Transmission Date: 20201102
  Serious: No
  Sender: FDA-Public Use
  Company Number: US-PFIZER INC-2020173479

PATIENT
  Age: 50 Year
  Sex: Male
  Weight: 90.72 kg

DRUGS (1)
  1. METHOTREXATE SODIUM. [Suspect]
     Active Substance: METHOTREXATE SODIUM
     Dosage: UNK

REACTIONS (4)
  - Abdominal pain upper [Unknown]
  - Liver function test increased [Unknown]
  - Visual impairment [Unknown]
  - Headache [Unknown]
